FAERS Safety Report 18079423 (Version 1)
Quarter: 2020Q3

REPORT INFORMATION
  Report Type: Spontaneous
  Country: US (occurrence: US)
  Receive Date: 20200727
  Receipt Date: 20200727
  Transmission Date: 20201103
  Serious: No
  Sender: FDA-Public Use
  Company Number: None

PATIENT
  Age: 42 Year
  Sex: Female

DRUGS (1)
  1. DUPIXENT [Suspect]
     Active Substance: DUPILUMAB
     Indication: ASTHMA
     Route: 058
     Dates: start: 202007

REACTIONS (4)
  - Injection site bruising [None]
  - Skin disorder [None]
  - Injection site exfoliation [None]
  - Pain of skin [None]

NARRATIVE: CASE EVENT DATE: 202007
